FAERS Safety Report 9909154 (Version 1)
Quarter: 2014Q1

REPORT INFORMATION
  Report Type: Spontaneous
  Country: US (occurrence: None)
  Receive Date: 20140214
  Receipt Date: 20140214
  Transmission Date: 20141002
  Serious: No
  Sender: FDA-Public Use
  Company Number: None

PATIENT
  Age: 55 Year
  Sex: Male

DRUGS (7)
  1. OLANZAPINE [Suspect]
     Route: 048
  2. BENZTROPIN [Concomitant]
  3. ZYDIS [Concomitant]
  4. METAMUCIL [Concomitant]
  5. MULTIVITAMIN [Concomitant]
  6. GEMFIBROZIL [Concomitant]
  7. FISH OIL [Concomitant]

REACTIONS (4)
  - Tremor [None]
  - Tremor [None]
  - Muscle twitching [None]
  - Muscle twitching [None]
